FAERS Safety Report 16252321 (Version 3)
Quarter: 2019Q2

REPORT INFORMATION
  Report Type: Spontaneous
  Country: GB (occurrence: GB)
  Receive Date: 20190429
  Receipt Date: 20190601
  Transmission Date: 20190711
  Serious: Yes (Hospitalization, Other)
  Sender: FDA-Public Use
  Company Number: GB-BRISTOL-MYERS SQUIBB COMPANY-BMS-2019-040187

PATIENT
  Age: 88 Year
  Sex: Female

DRUGS (1)
  1. WARFARIN SODIUM. [Suspect]
     Active Substance: WARFARIN SODIUM
     Indication: ATRIAL FIBRILLATION
     Dosage: UNK
     Route: 065

REACTIONS (3)
  - Joint dislocation [Recovered/Resolved]
  - International normalised ratio increased [Recovering/Resolving]
  - Haemarthrosis [Recovered/Resolved]
